FAERS Safety Report 5031382-8 (Version None)
Quarter: 2006Q2

REPORT INFORMATION
  Report Type: 
  Country: None (occurrence: None)
  Receive Date: 20060616
  Receipt Date: 20060607
  Transmission Date: 20061013
  Serious: Yes (Hospitalization)
  Sender: FDA-Public Use
  Company Number: 2004-04-1691

PATIENT
  Age: 66 Year
  Sex: Female
  Weight: 44 kg

DRUGS (1)
  1. CELESTAMINE TAB [Suspect]
     Indication: SYSTEMIC LUPUS ERYTHEMATOSUS
     Dosage: 2-1 TABL QD ORAL
     Route: 048
     Dates: start: 19730101

REACTIONS (3)
  - BONE MARROW DISORDER [None]
  - DISSEMINATED TUBERCULOSIS [None]
  - GRANULOMA [None]
